FAERS Safety Report 8197724-X (Version None)
Quarter: 2012Q1

REPORT INFORMATION
  Report Type: 
  Country: None (occurrence: None)
  Receive Date: 20120309
  Receipt Date: 20120302
  Transmission Date: 20120608
  Serious: Yes (Hospitalization, Other)
  Sender: FDA-Public Use
  Company Number: CO-JNJFOC-20120108806

PATIENT
  Age: 55 Year
  Sex: Female

DRUGS (1)
  1. RISPERDAL CONSTA [Suspect]
     Indication: BIPOLAR DISORDER
     Route: 030
     Dates: start: 20110929

REACTIONS (2)
  - OSTEOMYELITIS [None]
  - FOOT AMPUTATION [None]
